FAERS Safety Report 6566703-8 (Version None)
Quarter: 2010Q1

REPORT INFORMATION
  Report Type: 
  Country: None (occurrence: None)
  Receive Date: 20100202
  Receipt Date: 20100125
  Transmission Date: 20100710
  Serious: Yes (Other)
  Sender: FDA-Public Use
  Company Number: US-BAYER-201013934GPV

PATIENT
  Age: 50 Year
  Sex: Female

DRUGS (6)
  1. NAPROXEN [Suspect]
     Indication: MYALGIA
  2. CETIRIZINE HCL [Concomitant]
     Indication: DRUG ERUPTION
     Route: 065
  3. LISINOPRIL [Concomitant]
  4. HYDROCHLOROTHIAZIDE [Concomitant]
  5. MULTI-VITAMIN [Concomitant]
  6. FISH OIL [Concomitant]

REACTIONS (1)
  - DERMATITIS BULLOUS [None]
